FAERS Safety Report 11301417 (Version 1)
Quarter: 2015Q3

REPORT INFORMATION
  Report Type: Spontaneous
  Country: US (occurrence: None)
  Receive Date: 20150723
  Receipt Date: 20150723
  Transmission Date: 20151125
  Serious: No
  Sender: FDA-Public Use
  Company Number: None

PATIENT
  Age: 84 Year
  Sex: Female

DRUGS (1)
  1. SOVALDI [Suspect]
     Active Substance: SOFOSBUVIR
     Indication: HEPATITIS C
     Route: 048
     Dates: start: 20150716

REACTIONS (5)
  - Diarrhoea [None]
  - Condition aggravated [None]
  - Flatulence [None]
  - Rash [None]
  - Muscle spasms [None]

NARRATIVE: CASE EVENT DATE: 20150721
